FAERS Safety Report 5877075-6 (Version None)
Quarter: 2008Q3

REPORT INFORMATION
  Report Type: 
  Country: None (occurrence: None)
  Receive Date: 20080910
  Receipt Date: 20080903
  Transmission Date: 20090109
  Serious: Yes (Death, Hospitalization, Other)
  Sender: FDA-Public Use
  Company Number: PHBS2008US05607

PATIENT
  Age: 19 Year
  Sex: Male

DRUGS (3)
  1. CYCLOSPORINE [Suspect]
     Indication: LUNG TRANSPLANT
  2. AZATHIOPRINE [Suspect]
     Indication: LUNG TRANSPLANT
  3. PREDNISONE TAB [Suspect]
     Indication: LUNG TRANSPLANT

REACTIONS (16)
  - ANASTOMOTIC COMPLICATION [None]
  - ASPERGILLOSIS [None]
  - BRONCHIAL FISTULA [None]
  - BRONCHIAL SECRETION RETENTION [None]
  - BRONCHITIS BACTERIAL [None]
  - CYTOMEGALOVIRUS INFECTION [None]
  - FORCED EXPIRATORY VOLUME DECREASED [None]
  - HAEMOPTYSIS [None]
  - HYPOXIA [None]
  - NECROSIS [None]
  - PNEUMONIA [None]
  - PSEUDOMONAS INFECTION [None]
  - RESUSCITATION [None]
  - THROMBOSIS [None]
  - TRANSPLANT REJECTION [None]
  - WOUND DEHISCENCE [None]
